FAERS Safety Report 10248818 (Version 2)
Quarter: 2014Q2

REPORT INFORMATION
  Report Type: Spontaneous
  Country: DE (occurrence: None)
  Receive Date: 20140618
  Receipt Date: 20140630
  Transmission Date: 20141212
  Serious: Yes (Hospitalization)
  Sender: FDA-Public Use
  Company Number: AUR-APL-2014-06407

PATIENT
  Age: 52 Year
  Sex: Male

DRUGS (1)
  1. MIRTAZAPINE (MIRTAZAPINE) UNKNOWN, UNKNOWN [Suspect]
     Indication: PRODUCT USED FOR UNKNOWN INDICATION
     Dosage: 7.5 MG PER DAY, ORAL
     Route: 048
     Dates: start: 20140121, end: 20140127

REACTIONS (2)
  - Dermatitis allergic [None]
  - Rash [None]
